FAERS Safety Report 7520499-1 (Version None)
Quarter: 2011Q2

REPORT INFORMATION
  Report Type: 
  Country: None (occurrence: None)
  Receive Date: 20110602
  Receipt Date: 20110524
  Transmission Date: 20111010
  Serious: Yes (Hospitalization)
  Sender: FDA-Public Use
  Company Number: US-ELI_LILLY_AND_COMPANY-US201105007919

PATIENT
  Sex: Female
  Weight: 61.55 kg

DRUGS (2)
  1. PEMETREXED [Suspect]
     Indication: CERVIX CARCINOMA
     Dosage: 500 MG/M2, OTHER(EVERY 21 DAYS)
     Route: 042
     Dates: start: 20110513
  2. CISPLATIN [Suspect]
     Indication: CERVIX CARCINOMA
     Dosage: 50 MG/M2, OTHER(EVERY 21 DAYS)
     Route: 042
     Dates: start: 20110513

REACTIONS (8)
  - DEHYDRATION [None]
  - NEUTROPHIL COUNT DECREASED [None]
  - HAEMOGLOBIN DECREASED [None]
  - PLATELET COUNT DECREASED [None]
  - DIARRHOEA [None]
  - WHITE BLOOD CELL COUNT INCREASED [None]
  - HYPONATRAEMIA [None]
  - ILEAL FISTULA [None]
